FAERS Safety Report 6278193-3 (Version None)
Quarter: 2009Q3

REPORT INFORMATION
  Report Type: 
  Country: None (occurrence: None)
  Receive Date: 20090722
  Receipt Date: 20090710
  Transmission Date: 20100115
  Serious: Yes (Other)
  Sender: FDA-Public Use
  Company Number: JP-PFIZER INC-2009173561

PATIENT
  Age: 70 Year

DRUGS (5)
  1. LIPITOR [Suspect]
     Indication: HYPERLIPIDAEMIA
     Dosage: DAILY
     Dates: start: 20070612, end: 20090101
  2. AMLODIPINE [Suspect]
     Dosage: 5 MG, UNK
     Route: 048
     Dates: start: 20050524
  3. MICARDIS [Suspect]
     Indication: HYPERTENSION
     Dosage: 40 MG, UNK
     Route: 048
  4. IMIDAPRIL HYDROCHLORIDE [Concomitant]
  5. MAGNESIUM OXIDE [Concomitant]
     Dosage: UNK
     Route: 048
     Dates: start: 20050509, end: 20080925

REACTIONS (4)
  - AMNESIA [None]
  - EPILEPSY [None]
  - MUSCULAR WEAKNESS [None]
  - NERVOUSNESS [None]
